FAERS Safety Report 4895708-8 (Version None)
Quarter: 2005Q4

REPORT INFORMATION
  Report Type: 
  Country: None (occurrence: None)
  Receive Date: 20051221
  Receipt Date: 20050720
  Transmission Date: 20060501
  Serious: Yes (Hospitalization)
  Sender: FDA-Public Use
  Company Number: A03200502192

PATIENT

DRUGS (1)
  1. PRIMACOR [Suspect]
     Indication: CARDIAC FAILURE CHRONIC
     Dosage: 0.5 MCG/KG/MIN 3 TIMES PER WEEK - INTRAVENOUS NOS
     Route: 042

REACTIONS (1)
  - CARDIAC FAILURE CONGESTIVE [None]
